FAERS Safety Report 15448362 (Version 1)
Quarter: 2018Q3

REPORT INFORMATION
  Report Type: Spontaneous
  Country: US (occurrence: US)
  Receive Date: 20180926
  Receipt Date: 20180926
  Transmission Date: 20181010
  Serious: Yes (Other)
  Sender: FDA-Public Use
  Company Number: None

PATIENT
  Age: 86 Year
  Sex: Female
  Weight: 75.69 kg

DRUGS (6)
  1. FEMARA [Concomitant]
     Active Substance: LETROZOLE
  2. CENTRUM SILVER 50+ WOMEN [Concomitant]
  3. ONDANSETRON [Concomitant]
     Active Substance: ONDANSETRON
  4. CAPECITABINE. [Concomitant]
     Active Substance: CAPECITABINE
  5. ZOMETA [Concomitant]
     Active Substance: ZOLEDRONIC ACID
  6. IBRANCE [Suspect]
     Active Substance: PALBOCICLIB
     Indication: BREAST CANCER
     Route: 048
     Dates: start: 20180413

REACTIONS (1)
  - Urine odour abnormal [None]

NARRATIVE: CASE EVENT DATE: 20180926
